FAERS Safety Report 5423539-9 (Version None)
Quarter: 2007Q3

REPORT INFORMATION
  Report Type: 
  Country: None (occurrence: None)
  Receive Date: 20070823
  Receipt Date: 20061010
  Transmission Date: 20080115
  Serious: No
  Sender: FDA-Public Use
  Company Number: US-ASTRAZENECA-2006UW19624

PATIENT
  Age: 80 Year
  Sex: Female

DRUGS (3)
  1. IRESSA [Suspect]
     Indication: LUNG NEOPLASM MALIGNANT
     Route: 048
  2. LEXAPRO [Concomitant]
  3. VITAMIN B-12 [Concomitant]

REACTIONS (7)
  - EYE DISCHARGE [None]
  - EYE PAIN [None]
  - NAIL DISCOLOURATION [None]
  - NAIL INFECTION [None]
  - NAUSEA [None]
  - ONYCHOCLASIS [None]
  - VOMITING [None]
